FAERS Safety Report 8187540-7 (Version None)
Quarter: 2012Q1

REPORT INFORMATION
  Report Type: 
  Country: None (occurrence: None)
  Receive Date: 20120306
  Receipt Date: 20120229
  Transmission Date: 20120608
  Serious: Yes (Hospitalization)
  Sender: FDA-Public Use
  Company Number: NL-MEDIMMUNE-MEDI-0014805

PATIENT
  Sex: Female

DRUGS (2)
  1. NYSTATIN [Concomitant]
     Dates: start: 20120202
  2. SYNAGIS [Suspect]
     Indication: PREMATURE BABY
     Route: 030
     Dates: start: 20111206, end: 20120102

REACTIONS (2)
  - CRYING [None]
  - PAIN [None]
